FAERS Safety Report 7053140-5 (Version None)
Quarter: 2010Q4

REPORT INFORMATION
  Report Type: 
  Country: None (occurrence: None)
  Receive Date: 20101020
  Receipt Date: 20101015
  Transmission Date: 20110411
  Serious: Yes (Hospitalization, Other)
  Sender: FDA-Public Use
  Company Number: US-ASTRAZENECA-2007UW05543

PATIENT
  Age: 13537 Day
  Sex: Female
  Weight: 113.4 kg

DRUGS (47)
  1. SEROQUEL [Suspect]
     Indication: DEPRESSION
     Dosage: 100 - 200 MG DAILY
     Route: 048
     Dates: start: 20001027, end: 20001030
  2. SEROQUEL [Suspect]
     Indication: ANXIETY
     Dosage: 100 - 200 MG DAILY
     Route: 048
     Dates: start: 20001027, end: 20001030
  3. SEROQUEL [Suspect]
     Indication: PARANOIA
     Dosage: 100 - 200 MG DAILY
     Route: 048
     Dates: start: 20001027, end: 20001030
  4. SEROQUEL [Suspect]
     Indication: NIGHTMARE
     Dosage: 100 - 200 MG DAILY
     Route: 048
     Dates: start: 20001027, end: 20001030
  5. SEROQUEL [Suspect]
     Indication: BIPOLAR DISORDER
     Dosage: 100 - 200 MG DAILY
     Route: 048
     Dates: start: 20001027, end: 20001030
  6. SEROQUEL [Suspect]
     Route: 048
     Dates: start: 20011201, end: 20060201
  7. SEROQUEL [Suspect]
     Route: 048
     Dates: start: 20011201, end: 20060201
  8. SEROQUEL [Suspect]
     Route: 048
     Dates: start: 20011201, end: 20060201
  9. SEROQUEL [Suspect]
     Route: 048
     Dates: start: 20011201, end: 20060201
  10. SEROQUEL [Suspect]
     Route: 048
     Dates: start: 20011201, end: 20060201
  11. SEROQUEL [Suspect]
     Dosage: 100 - 600 MG DAILY
     Route: 048
     Dates: start: 20020130
  12. SEROQUEL [Suspect]
     Dosage: 100 - 600 MG DAILY
     Route: 048
     Dates: start: 20020130
  13. SEROQUEL [Suspect]
     Dosage: 100 - 600 MG DAILY
     Route: 048
     Dates: start: 20020130
  14. SEROQUEL [Suspect]
     Dosage: 100 - 600 MG DAILY
     Route: 048
     Dates: start: 20020130
  15. SEROQUEL [Suspect]
     Dosage: 100 - 600 MG DAILY
     Route: 048
     Dates: start: 20020130
  16. ZYPREXA [Concomitant]
     Indication: BIPOLAR DISORDER
     Dates: start: 20000401, end: 20011220
  17. ZYPREXA [Concomitant]
     Indication: DEPRESSION
     Dates: start: 20000401, end: 20011220
  18. ZYPREXA [Concomitant]
     Dates: start: 20001106, end: 20040101
  19. ZYPREXA [Concomitant]
     Dates: start: 20001106, end: 20040101
  20. RISPERDAL [Concomitant]
     Indication: ANXIETY
     Dates: start: 20010821, end: 20020101
  21. RISPERDAL [Concomitant]
     Indication: SLEEP DISORDER
     Dates: start: 20010821, end: 20020101
  22. RISPERDAL [Concomitant]
     Indication: PARANOIA
     Dates: start: 20010821, end: 20020101
  23. RISPERDAL [Concomitant]
     Indication: BIPOLAR DISORDER
     Dates: start: 20010821, end: 20020101
  24. RISPERDAL [Concomitant]
     Indication: DEPRESSION
     Dates: start: 20010821, end: 20020101
  25. RISPERDAL [Concomitant]
     Route: 048
     Dates: start: 20010731, end: 20020630
  26. RISPERDAL [Concomitant]
     Route: 048
     Dates: start: 20010731, end: 20020630
  27. RISPERDAL [Concomitant]
     Route: 048
     Dates: start: 20010731, end: 20020630
  28. RISPERDAL [Concomitant]
     Route: 048
     Dates: start: 20010731, end: 20020630
  29. RISPERDAL [Concomitant]
     Route: 048
     Dates: start: 20010731, end: 20020630
  30. RISPERDAL [Concomitant]
     Dates: start: 20010701, end: 20011201
  31. RISPERDAL [Concomitant]
     Dates: start: 20010701, end: 20011201
  32. RISPERDAL [Concomitant]
     Dates: start: 20010701, end: 20011201
  33. RISPERDAL [Concomitant]
     Dates: start: 20010701, end: 20011201
  34. RISPERDAL [Concomitant]
     Dates: start: 20010701, end: 20011201
  35. NEURONTIN [Concomitant]
     Dosage: 30 - 2000 MG DAILY
     Route: 048
  36. LEXAPRO [Concomitant]
     Dosage: 10 - 20 MG DAILY
  37. DIAZEPAM [Concomitant]
  38. TRAZODONE HCL [Concomitant]
     Dosage: 100 - 150 MG DAILY
  39. ZOLOFT [Concomitant]
     Dosage: 50 - 150 MG DAILY
     Route: 048
  40. WELLBUTRIN SR [Concomitant]
     Dosage: 100 - 300 MG
     Route: 048
  41. TEMAZEPAM [Concomitant]
     Indication: INSOMNIA
     Dosage: 15 - 30 MG DAILY
  42. TEMAZEPAM [Concomitant]
     Route: 048
  43. GEODON [Concomitant]
     Dosage: 60-120 MG
  44. EFFEXOR [Concomitant]
     Dosage: 20 - 300 MG DAILY
     Route: 048
  45. HYDROXYZINE [Concomitant]
     Dosage: 25 - 75 MG DAILY
     Route: 048
     Dates: start: 20001020, end: 20020630
  46. HALDOL [Concomitant]
     Dates: start: 20060213
  47. PROZAC [Concomitant]

REACTIONS (12)
  - BACTERIAL TEST POSITIVE [None]
  - BLOOD CHOLESTEROL INCREASED [None]
  - BLOOD POTASSIUM DECREASED [None]
  - CATHETERISATION CARDIAC [None]
  - DIABETES MELLITUS [None]
  - DIABETIC KETOACIDOSIS [None]
  - FUNGAL TEST POSITIVE [None]
  - HYPERLIPIDAEMIA [None]
  - MULTIPLE INJURIES [None]
  - PNEUMONIA [None]
  - TYPE 2 DIABETES MELLITUS [None]
  - UPPER LIMB FRACTURE [None]
